FAERS Safety Report 21258821 (Version 1)
Quarter: 2022Q3

REPORT INFORMATION
  Report Type: Spontaneous
  Country: US (occurrence: US)
  Receive Date: 20220826
  Receipt Date: 20220826
  Transmission Date: 20221027
  Serious: No
  Sender: FDA-Public Use
  Company Number: US-AMNEAL PHARMACEUTICALS-2022-AMRX-01532

PATIENT
  Sex: Female

DRUGS (1)
  1. GUAIFENESIN [Suspect]
     Active Substance: GUAIFENESIN
     Indication: Productive cough
     Dosage: 1 CAPLET ONCE
     Route: 048

REACTIONS (3)
  - Oropharyngeal pain [Unknown]
  - Foreign body in throat [Recovered/Resolved]
  - Product use complaint [Recovered/Resolved]

NARRATIVE: CASE EVENT DATE: 20220514
